FAERS Safety Report 15009904 (Version 1)
Quarter: 2018Q2

REPORT INFORMATION
  Report Type: Spontaneous
  Country: US (occurrence: US)
  Receive Date: 20180614
  Receipt Date: 20180614
  Transmission Date: 20180711
  Serious: Yes (Hospitalization, Other)
  Sender: FDA-Public Use
  Company Number: US-ACCORD-068277

PATIENT
  Age: 78 Year
  Sex: Male

DRUGS (18)
  1. ROSUVASTATIN. [Suspect]
     Active Substance: ROSUVASTATIN
     Indication: PRODUCT USED FOR UNKNOWN INDICATION
     Dosage: CHRONIC MEDICATION WITH OVER TWO YEARS OF EXPOSURE
  2. LORAZEPAM. [Concomitant]
     Active Substance: LORAZEPAM
     Dosage: NIGHTLY AS NEEDED
  3. CALCIUM CARBONATE. [Concomitant]
     Active Substance: CALCIUM CARBONATE
     Dosage: 600 MG DAILY
  4. LOSARTAN. [Concomitant]
     Active Substance: LOSARTAN
     Dosage: 12.5 MG DAILY
  5. CLOPIDOGREL [Concomitant]
     Active Substance: CLOPIDOGREL BISULFATE
     Dosage: 75 MG DAILY
  6. METHYLPREDNISOLONE. [Concomitant]
     Active Substance: METHYLPREDNISOLONE
     Indication: HORMONE-REFRACTORY PROSTATE CANCER
  7. BICALUTAMIDE. [Concomitant]
     Active Substance: BICALUTAMIDE
     Indication: HORMONE-REFRACTORY PROSTATE CANCER
  8. WARFARIN [Concomitant]
     Active Substance: WARFARIN
     Dosage: 2 MG DAILY
  9. LEUPRORELIN/LEUPRORELIN ACETATE [Concomitant]
     Indication: HORMONE-REFRACTORY PROSTATE CANCER
     Dosage: EVERY FOUR MONTHS
     Route: 030
  10. MACROGOL [Concomitant]
     Active Substance: POLYETHYLENE GLYCOLS
     Dosage: EVERY THREE DAYS
  11. KETOCONAZOLE. [Concomitant]
     Active Substance: KETOCONAZOLE
     Indication: HORMONE-REFRACTORY PROSTATE CANCER
  12. FLUTAMIDE. [Concomitant]
     Active Substance: FLUTAMIDE
     Indication: HORMONE-REFRACTORY PROSTATE CANCER
  13. ABIRATERONE [Suspect]
     Active Substance: ABIRATERONE
     Indication: HORMONE-REFRACTORY PROSTATE CANCER
  14. LEUPRORELIN [Concomitant]
     Active Substance: LEUPROLIDE ACETATE
     Indication: HORMONE-REFRACTORY PROSTATE CANCER
     Dosage: EVERY FOUR MONTHS
  15. PREDNISONE. [Concomitant]
     Active Substance: PREDNISONE
     Dosage: 5 MG TWICE DAILY
  16. ATENOLOL/ATENOLOL HYDROCHLORIDE [Concomitant]
     Dosage: 25 MG DAILY
  17. HYDROCORTISONE. [Concomitant]
     Active Substance: HYDROCORTISONE
     Indication: HORMONE-REFRACTORY PROSTATE CANCER
  18. ACETYLSALICYLIC ACID [Concomitant]
     Active Substance: ASPIRIN
     Dosage: 325 MG DAILY

REACTIONS (4)
  - Acute kidney injury [Recovered/Resolved]
  - Rhabdomyolysis [Recovered/Resolved]
  - Failure to thrive [Recovered/Resolved]
  - Transaminases increased [Recovered/Resolved]
